FAERS Safety Report 8758357 (Version 1)
Quarter: 2012Q4

REPORT INFORMATION
  Report Type: Spontaneous
  Country: US (occurrence: None)
  Receive Date: 20120828
  Receipt Date: 20120828
  Transmission Date: 20130627
  Serious: Yes (Hospitalization, Other)
  Sender: FDA-Public Use
  Company Number: None

PATIENT
  Age: 59 Year
  Sex: Male
  Weight: 196 kg

DRUGS (2)
  1. VANCOMYCIN [Suspect]
     Route: 042
     Dates: start: 20120817, end: 20120819
  2. VANCOMYCIN [Suspect]
     Route: 042
     Dates: start: 20120819, end: 20120820

REACTIONS (3)
  - Postoperative wound infection [None]
  - Renal failure acute [None]
  - Staphylococcal infection [None]
